FAERS Safety Report 5145761-1 (Version None)
Quarter: 2006Q4

REPORT INFORMATION
  Report Type: 
  Country: None (occurrence: None)
  Receive Date: 20060915
  Receipt Date: 20060711
  Transmission Date: 20070319
  Serious: No
  Sender: FDA-Public Use
  Company Number: 2006RL000257

PATIENT
  Age: 52 Year
  Sex: Female
  Weight: 106.5953 kg

DRUGS (13)
  1. OMACOR [Suspect]
     Indication: DRUG USE FOR UNKNOWN INDICATION
     Dosage: SEE IMAGE
     Route: 048
     Dates: start: 20060610, end: 20060101
  2. OMACOR [Suspect]
     Indication: DRUG USE FOR UNKNOWN INDICATION
     Dosage: SEE IMAGE
     Route: 048
     Dates: start: 20060608, end: 20060609
  3. NEXIUM [Concomitant]
  4. LANTUS [Concomitant]
  5. ACTOS [Concomitant]
  6. TAZTIA XT [Concomitant]
  7. DOXEPIN HCL [Concomitant]
  8. ALLEGRA [Concomitant]
  9. LISINOPRIL [Concomitant]
  10. METFORMIN [Concomitant]
  11. CLONAZEPAM [Concomitant]
  12. CRESTOR [Concomitant]
  13. HUMALOG [Concomitant]

REACTIONS (8)
  - CONDITION AGGRAVATED [None]
  - DYSGEUSIA [None]
  - GASTROOESOPHAGEAL REFLUX DISEASE [None]
  - HOT FLUSH [None]
  - HYPERHIDROSIS [None]
  - STOMACH DISCOMFORT [None]
  - THERAPEUTIC RESPONSE UNEXPECTED [None]
  - THROAT IRRITATION [None]
